FAERS Safety Report 7485213-7 (Version None)
Quarter: 2011Q2

REPORT INFORMATION
  Report Type: 
  Country: None (occurrence: None)
  Receive Date: 20110517
  Receipt Date: 20110110
  Transmission Date: 20111010
  Serious: No
  Sender: FDA-Public Use
  Company Number: US-BAYER-2011-003580

PATIENT
  Age: 90 Year
  Sex: Female
  Weight: 71 kg

DRUGS (3)
  1. ACTONEL [Concomitant]
     Route: 048
  2. ANTIHYPERTENSIVES [Concomitant]
  3. ALEVE (CAPLET) [Suspect]
     Indication: HERPES ZOSTER

REACTIONS (1)
  - PAIN [None]
